FAERS Safety Report 10103269 (Version 1)
Quarter: 2014Q2

REPORT INFORMATION
  Report Type: Spontaneous
  Country: IT (occurrence: IT)
  Receive Date: 20140424
  Receipt Date: 20140424
  Transmission Date: 20141212
  Serious: Yes (Other)
  Sender: FDA-Public Use
  Company Number: IT-GLAXOSMITHKLINE-B0987678A

PATIENT
  Age: 81 Year
  Sex: Female

DRUGS (1)
  1. VOTRIENT [Suspect]
     Indication: RENAL CANCER
     Dosage: 800MG PER DAY
     Route: 048
     Dates: start: 20131009, end: 20140409

REACTIONS (3)
  - Neutropenia [Recovered/Resolved]
  - Anaemia [Recovered/Resolved]
  - Asthenia [Recovered/Resolved]
